FAERS Safety Report 4283692-X (Version None)
Quarter: 2004Q1

REPORT INFORMATION
  Report Type: 
  Country: None (occurrence: None)
  Receive Date: 20040202
  Receipt Date: 20031030
  Transmission Date: 20041129
  Serious: Yes (Hospitalization, Congenital Anomaly)
  Sender: FDA-Public Use
  Company Number: PHRM2003FR02935

PATIENT
  Sex: Female

DRUGS (1)
  1. TEGRETOL [Suspect]
     Route: 064

REACTIONS (8)
  - ATROPHY [None]
  - CONGENITAL PYELOCALIECTASIS [None]
  - CONGENITAL URETHRAL ANOMALY [None]
  - DOUBLE URETER [None]
  - DRUG EXPOSURE DURING PREGNANCY [None]
  - EPILEPSY [None]
  - NEPHRECTOMY [None]
  - RENAL HYPERTROPHY [None]
